FAERS Safety Report 5369343-1 (Version None)
Quarter: 2007Q2

REPORT INFORMATION
  Report Type: 
  Country: None (occurrence: None)
  Receive Date: 20070625
  Receipt Date: 20070404
  Transmission Date: 20071010
  Serious: Yes (Hospitalization)
  Sender: FDA-Public Use
  Company Number: US-ASTRAZENECA-2007UW06228

PATIENT
  Age: 67 Year
  Sex: Male

DRUGS (4)
  1. CRESTOR [Suspect]
     Indication: BLOOD CHOLESTEROL INCREASED
     Route: 048
  2. CRESTOR [Suspect]
     Route: 048
  3. JANUVIA [Suspect]
     Indication: DIABETES MELLITUS
  4. LIPITOR [Concomitant]

REACTIONS (1)
  - RHABDOMYOLYSIS [None]
